FAERS Safety Report 7683773-4 (Version None)
Quarter: 2011Q3

REPORT INFORMATION
  Report Type: 
  Country: None (occurrence: None)
  Receive Date: 20110815
  Receipt Date: 20110808
  Transmission Date: 20111222
  Serious: Yes (Other)
  Sender: FDA-Public Use
  Company Number: US-CEPHALON-US017384

PATIENT
  Sex: Female
  Weight: 69 kg

DRUGS (13)
  1. FLEXERIL [Concomitant]
     Indication: PAIN
     Route: 048
     Dates: start: 20060207
  2. PROVIGIL [Suspect]
     Indication: FIBROMYALGIA
  3. TRIAMTERENE AND HYDROCHLOROTHIAZIDE [Concomitant]
     Indication: HYPERTENSION
     Dosage: 37.5/25MG QD
     Route: 048
     Dates: start: 20051001
  4. HYDROCODONE BITARTRATE AND ACETAMINOPHEN [Concomitant]
     Indication: PAIN
     Dosage: 10/500MG TID
     Route: 048
  5. CLONAZEPAM [Concomitant]
     Route: 048
     Dates: start: 20051001
  6. PROVIGIL [Suspect]
     Indication: SLEEP APNOEA SYNDROME
     Route: 048
     Dates: start: 20060207, end: 20060301
  7. SOMA [Concomitant]
     Indication: PAIN
     Route: 048
     Dates: end: 20060207
  8. PROVIGIL [Suspect]
     Indication: CHRONIC FATIGUE SYNDROME
     Route: 048
     Dates: start: 20060301
  9. TRIAMTERENE AND HYDROCHLOROTHIAZIDE [Concomitant]
     Indication: DIURETIC THERAPY
  10. CARDIZEM [Concomitant]
     Indication: HYPERTENSION
     Route: 048
     Dates: start: 20051001, end: 20060401
  11. TIAZAC [Concomitant]
     Indication: HYPERTENSION
     Route: 048
     Dates: start: 20060401
  12. ZYRTEC [Concomitant]
     Indication: MULTIPLE ALLERGIES
     Route: 048
     Dates: start: 20050101
  13. CYMBALTA [Concomitant]
     Route: 048
     Dates: start: 20051001

REACTIONS (5)
  - TACHYCARDIA [None]
  - HYPERTENSION [None]
  - FATIGUE [None]
  - BACK PAIN [None]
  - LOSS OF CONSCIOUSNESS [None]
